FAERS Safety Report 7499284-5 (Version None)
Quarter: 2011Q2

REPORT INFORMATION
  Report Type: 
  Country: None (occurrence: None)
  Receive Date: 20110524
  Receipt Date: 20110510
  Transmission Date: 20111010
  Serious: Yes (Hospitalization)
  Sender: FDA-Public Use
  Company Number: AU-JNJFOC-20110504747

PATIENT
  Sex: Female
  Weight: 93.7 kg

DRUGS (5)
  1. HYDROCORTISONE [Concomitant]
  2. REMICADE [Suspect]
     Route: 042
     Dates: start: 20100602, end: 20110105
  3. ZYRTEC [Concomitant]
  4. REMICADE [Suspect]
     Indication: PRODUCT USED FOR UNKNOWN INDICATION
     Route: 042
     Dates: start: 20110302
  5. ACITRETIN [Concomitant]

REACTIONS (5)
  - CYANOSIS [None]
  - FLUSHING [None]
  - OXYGEN SATURATION DECREASED [None]
  - DYSPNOEA [None]
  - INFUSION RELATED REACTION [None]
